FAERS Safety Report 8251519-7 (Version None)
Quarter: 2012Q1

REPORT INFORMATION
  Report Type: 
  Country: None (occurrence: None)
  Receive Date: 20120322
  Receipt Date: 20120227
  Transmission Date: 20120608
  Serious: Yes (Hospitalization)
  Sender: FDA-Public Use
  Company Number: UTC-015815

PATIENT
  Age: 31 Year
  Sex: Female
  Weight: 80.91 kg

DRUGS (3)
  1. COUMADIN [Concomitant]
  2. REVATIO (SILDENAFIL CITRTE) [Concomitant]
  3. TYVASO [Suspect]
     Indication: PULMONARY ARTERIAL HYPERTENSION
     Dosage: 240 MCG (60 MCG, 4 IN 1 D) INHALATION
     Route: 055
     Dates: start: 20100909

REACTIONS (1)
  - SYNCOPE [None]
